FAERS Safety Report 14879685 (Version 2)
Quarter: 2018Q2

REPORT INFORMATION
  Report Type: Spontaneous
  Country: US (occurrence: US)
  Receive Date: 20180511
  Receipt Date: 20180609
  Transmission Date: 20180711
  Serious: No
  Sender: FDA-Public Use
  Company Number: PHEH2018US017225

PATIENT
  Sex: Female

DRUGS (1)
  1. PREDNISOLONE ACETATE. [Suspect]
     Active Substance: PREDNISOLONE ACETATE
     Indication: OPHTHALMIC HERPES SIMPLEX
     Dosage: UNK UNK, QD
     Route: 047

REACTIONS (3)
  - Product container issue [Unknown]
  - Drug administration error [Unknown]
  - Product dropper issue [Unknown]
